FAERS Safety Report 25366739 (Version 1)
Quarter: 2025Q2

REPORT INFORMATION
  Report Type: Report from Study
  Country: US (occurrence: US)
  Receive Date: 20250528
  Receipt Date: 20250528
  Transmission Date: 20250716
  Serious: Yes (Hospitalization)
  Sender: ABBVIE
  Company Number: US-ABBVIE-6229741

PATIENT
  Age: 44 Year
  Sex: Male

DRUGS (1)
  1. SKYRIZI [Suspect]
     Active Substance: RISANKIZUMAB-RZAA
     Indication: Crohn^s disease
     Route: 042
     Dates: start: 20250227

REACTIONS (10)
  - Road traffic accident [Unknown]
  - Intentional product misuse [Unknown]
  - Skull fracture [Unknown]
  - Craniofacial fracture [Unknown]
  - Craniofacial fracture [Unknown]
  - Clavicle fracture [Unknown]
  - Scapula fracture [Unknown]
  - Pneumothorax [Unknown]
  - Pulmonary contusion [Unknown]
  - Cerebral haemorrhage [Recovered/Resolved]

NARRATIVE: CASE EVENT DATE: 20250227
